FAERS Safety Report 10867733 (Version 4)
Quarter: 2015Q2

REPORT INFORMATION
  Report Type: Report from Study
  Country: US (occurrence: US)
  Receive Date: 20150225
  Receipt Date: 20150504
  Transmission Date: 20150821
  Serious: No
  Sender: FDA-Public Use
  Company Number: US-VERTEX PHARMACEUTICALS-2015-000497

PATIENT
  Age: 68 Year
  Sex: Female
  Weight: 56 kg

DRUGS (33)
  1. PULMOZYME [Concomitant]
     Active Substance: DORNASE ALFA
     Dosage: 2.5 MG, QD
     Route: 055
  2. LATANOPROST. [Concomitant]
     Active Substance: LATANOPROST
  3. VITAMIN D3 CALCIUM [Concomitant]
  4. LUTEIN [Concomitant]
     Active Substance: LUTEIN
     Dosage: 6 MG, QD
     Route: 048
  5. HYPERTONIC SALINE SOLUTION [Concomitant]
     Active Substance: SODIUM CHLORIDE
     Dosage: 1 DF, PRN
  6. CAYSTON [Concomitant]
     Active Substance: AZTREONAM
     Dosage: 75 MG, TID X28 DAYS, EVERY 4TH MONTH
  7. VITAMIN A [Concomitant]
     Active Substance: VITAMIN A
     Dosage: 8000 IU, QD
  8. CALCIUM [Concomitant]
     Active Substance: CALCIUM
     Dosage: 1500 MG, QD
     Route: 048
  9. LEVOFLOXACIN. [Concomitant]
     Active Substance: LEVOFLOXACIN
     Indication: RASH
     Dosage: 750 MG, QD
     Dates: start: 201403
  10. CEFPODOXIME [Concomitant]
     Active Substance: CEFPODOXIME
     Dosage: 200 MG, BID
     Route: 048
  11. TOBI [Concomitant]
     Active Substance: TOBRAMYCIN
     Dosage: 150 MG, BID X 28 DAYS (EVERY 4TH MONTH)
  12. XOPENEX HFA [Concomitant]
     Active Substance: LEVALBUTEROL TARTRATE
     Dosage: 1.25 MG, 6 HOURS, PRN VIA E-FLOW NEBULIZER
     Route: 055
  13. COLISTIN [Concomitant]
     Active Substance: COLISTIN
     Dosage: UNK
     Route: 042
     Dates: start: 201403
  14. VITAMIN A [Concomitant]
     Active Substance: VITAMIN A
     Dosage: 50000 IU, BID
     Route: 048
  15. VITAMIN C [Concomitant]
     Active Substance: ASCORBIC ACID
     Dosage: 500 MG, QD
  16. LEVOFLOXACIN. [Concomitant]
     Active Substance: LEVOFLOXACIN
     Dosage: UNK
     Dates: start: 201408
  17. MEROPENEM. [Concomitant]
     Active Substance: MEROPENEM
     Dosage: 2 G, TID
     Route: 042
     Dates: start: 201403
  18. KALYDECO [Suspect]
     Active Substance: IVACAFTOR
     Indication: CYSTIC FIBROSIS
     Dosage: 150 MG, BID
     Route: 048
     Dates: start: 20150203
  19. TOBI [Concomitant]
     Active Substance: TOBRAMYCIN
     Dosage: 60 MG/ML, UNK
  20. FLUCONAZOLE. [Concomitant]
     Active Substance: FLUCONAZOLE
     Dosage: 1 DF, QD
     Route: 048
  21. CF SOFTGELS [Concomitant]
     Dosage: 2 DF, QD
     Route: 048
  22. TOBI [Concomitant]
     Active Substance: TOBRAMYCIN
     Dosage: 300 MG/5 ML, UNK
  23. VITAMIN D [Concomitant]
     Active Substance: CHOLECALCIFEROL
     Dosage: 800 IU, QD
  24. RESTORIL [Concomitant]
     Active Substance: TEMAZEPAM
     Indication: INSOMNIA
     Dosage: 30 MG, QHS, PRN
     Route: 048
  25. RESTORIL [Concomitant]
     Active Substance: TEMAZEPAM
     Dosage: 15 MG, QHS, PRN
     Route: 048
  26. MEROPENEM. [Concomitant]
     Active Substance: MEROPENEM
     Dosage: 2 G, TID
     Route: 042
     Dates: start: 201501
  27. AQUADEKS [Concomitant]
  28. FLUVIRIN NOS [Concomitant]
     Active Substance: INFLUENZA VIRUS VACCINE
     Dosage: 0.5 ML, UNK
     Route: 030
     Dates: start: 2014
  29. SODIUM CHLORIDE. [Concomitant]
     Active Substance: SODIUM CHLORIDE
     Dosage: 3 %, UNK
     Route: 055
  30. XOPENEX HFA [Concomitant]
     Active Substance: LEVALBUTEROL TARTRATE
     Dosage: 45 ?G (CFC FREE), UNK
     Route: 055
  31. TEMAZEPAM. [Concomitant]
     Active Substance: TEMAZEPAM
     Dosage: 30 MG, UNK
  32. AZITHROMYCIN [Concomitant]
     Active Substance: AZITHROMYCIN ANHYDROUS
     Dosage: 500 MG, MON, WED AND FRI
     Route: 048
  33. HYPERTONIC SALINE SOLUTION [Concomitant]
     Active Substance: SODIUM CHLORIDE

REACTIONS (4)
  - Nasal congestion [Recovered/Resolved]
  - Weight increased [Unknown]
  - Nasal dryness [Unknown]
  - Anxiety [Not Recovered/Not Resolved]

NARRATIVE: CASE EVENT DATE: 20150203
